FAERS Safety Report 8129565-3 (Version None)
Quarter: 2012Q1

REPORT INFORMATION
  Report Type: 
  Country: None (occurrence: None)
  Receive Date: 20120210
  Receipt Date: 20120201
  Transmission Date: 20120608
  Serious: Yes (Death, Hospitalization)
  Sender: FDA-Public Use
  Company Number: US-GLAXOSMITHKLINE-A0888981A

PATIENT
  Age: 81 Year
  Sex: Female

DRUGS (6)
  1. PROMACTA [Suspect]
     Indication: THROMBOCYTOPENIA
     Dosage: 25MG PER DAY
     Route: 048
     Dates: start: 20100607, end: 20100620
  2. CORTICOSTEROIDS [Concomitant]
  3. VIDAZA [Concomitant]
  4. DECADRON [Concomitant]
  5. IMMUNE GLOBULIN INTRAVENOUS (HUMAN) [Concomitant]
  6. REVLIMID [Concomitant]

REACTIONS (7)
  - MYELODYSPLASTIC SYNDROME [None]
  - ASTHENIA [None]
  - THROMBOCYTOPENIA [None]
  - ANAEMIA [None]
  - HAEMORRHAGE [None]
  - GRANULOCYTOPENIA [None]
  - INCREASED TENDENCY TO BRUISE [None]
